FAERS Safety Report 18315519 (Version 2)
Quarter: 2020Q4

REPORT INFORMATION
  Report Type: Spontaneous
  Country: JP (occurrence: JP)
  Receive Date: 20200926
  Receipt Date: 20201029
  Transmission Date: 20210113
  Serious: Yes (Other)
  Sender: FDA-Public Use
  Company Number: JP-AMGEN-JPN-20200502412

PATIENT
  Age: 83 Year
  Sex: Male

DRUGS (4)
  1. MARDUOX [Concomitant]
     Active Substance: BETAMETHASONE BUTYRATE PROPIONATE\MAXACALCITOL
     Indication: PRODUCT USED FOR UNKNOWN INDICATION
     Dosage: 1 GRAM, QD
     Route: 061
     Dates: start: 20200408
  2. ANTEBATE [Concomitant]
     Active Substance: BETAMETHASONE DIPROPIONATE
     Indication: PRODUCT USED FOR UNKNOWN INDICATION
     Dosage: 1 MILLILITER, QD
     Route: 061
     Dates: start: 20200408
  3. RUPAFIN [Concomitant]
     Active Substance: RUPATADINE FUMARATE
     Indication: PRURITUS
     Dosage: 10 MILLIGRAM, QD
     Route: 048
     Dates: start: 20200408
  4. OTEZLA [Suspect]
     Active Substance: APREMILAST
     Indication: PSORIASIS
     Dosage: 30 MILLIGRAM, BID
     Route: 048
     Dates: start: 20200427, end: 20200510

REACTIONS (2)
  - Blood pressure decreased [Unknown]
  - Atrial fibrillation [Recovered/Resolved]

NARRATIVE: CASE EVENT DATE: 2020
